FAERS Safety Report 8039606-X (Version None)
Quarter: 2012Q1

REPORT INFORMATION
  Report Type: 
  Country: None (occurrence: None)
  Receive Date: 20120111
  Receipt Date: 20111219
  Transmission Date: 20120608
  Serious: No
  Sender: FDA-Public Use
  Company Number: US-AMGEN-USASP2011067574

PATIENT
  Age: 56 Year
  Sex: Female

DRUGS (2)
  1. ENBREL [Suspect]
     Indication: RHEUMATOID ARTHRITIS
     Dosage: 50 MG, QWK
     Dates: start: 20111007
  2. METHOTREXATE [Concomitant]
     Dosage: UNK

REACTIONS (6)
  - ARTHRALGIA [None]
  - INJECTION SITE WARMTH [None]
  - JOINT SWELLING [None]
  - INJECTION SITE PRURITUS [None]
  - HEPATIC ENZYME INCREASED [None]
  - INJECTION SITE ERYTHEMA [None]
